FAERS Safety Report 6931474-X (Version None)
Quarter: 2010Q3

REPORT INFORMATION
  Report Type: 
  Country: None (occurrence: None)
  Receive Date: 20100819
  Receipt Date: 20100806
  Transmission Date: 20110219
  Serious: Yes (Hospitalization)
  Sender: FDA-Public Use
  Company Number: US-ELI_LILLY_AND_COMPANY-US201008002531

PATIENT
  Sex: Male

DRUGS (3)
  1. HUMATROPE [Suspect]
     Indication: BODY HEIGHT BELOW NORMAL
     Dosage: 20 MG, UNKNOWN
  2. XYZAL [Concomitant]
  3. SINGULAIR [Concomitant]

REACTIONS (2)
  - DRUG DOSE OMISSION [None]
  - STRABISMUS [None]
